APPROVED DRUG PRODUCT: EZETIMIBE AND SIMVASTATIN
Active Ingredient: EZETIMIBE; SIMVASTATIN
Strength: 10MG;40MG
Dosage Form/Route: TABLET;ORAL
Application: A208831 | Product #003
Applicant: AMNEAL PHARMACEUTICALS CO GMBH
Approved: Nov 21, 2017 | RLD: No | RS: No | Type: DISCN